FAERS Safety Report 20776844 (Version 1)
Quarter: 2022Q2

REPORT INFORMATION
  Report Type: Spontaneous
  Country: US (occurrence: US)
  Receive Date: 20220502
  Receipt Date: 20220502
  Transmission Date: 20220721
  Serious: No
  Sender: FDA-Public Use
  Company Number: US-Fresenius Medical Care Renal Therapies Group-FMC-2204-000597

PATIENT
  Sex: Male

DRUGS (2)
  1. DELFLEX WITH DEXTROSE 1.5% LOW MAGNESIUM LOW CALCIUM [Suspect]
     Active Substance: CALCIUM CHLORIDE\DEXTROSE\MAGNESIUM CHLORIDE\SODIUM CHLORIDE\SODIUM LACTATE
     Indication: End stage renal disease
     Dosage: FILLS=7; FV=2800ML; DWT=1 HR. 0 MIN; TV=18800ML; TST=9 HR. 30 MIN; LFV=2000ML;
     Route: 033
  2. DELFLEX WITH DEXTROSE 2.5% LOW MAGNESIUM LOW CALCIUM [Suspect]
     Active Substance: CALCIUM CHLORIDE\DEXTROSE\MAGNESIUM CHLORIDE\SODIUM CHLORIDE\SODIUM LACTATE
     Indication: End stage renal disease
     Dosage: FILLS=7; FV=2800ML; DWT=1 HR. 0 MIN; TV=18800ML; TST=9 HR. 30 MIN; LFV=2000ML;
     Route: 033

REACTIONS (2)
  - Diarrhoea [Unknown]
  - Thrombosis [Unknown]
